FAERS Safety Report 16516470 (Version 1)
Quarter: 2019Q3

REPORT INFORMATION
  Report Type: Spontaneous
  Country: US (occurrence: US)
  Receive Date: 20190522
  Receipt Date: 20190522
  Transmission Date: 20191004
  Serious: Yes (Hospitalization)
  Sender: FDA-Public Use
  Company Number: None

PATIENT
  Age: 75 Year
  Sex: Male

DRUGS (17)
  1. CEPHALEXIN. [Concomitant]
     Active Substance: CEPHALEXIN
  2. LEVOTHYROXIN [Concomitant]
     Active Substance: LEVOTHYROXINE
  3. ELIQUIS [Concomitant]
     Active Substance: APIXABAN
  4. MIRTAZAPINE. [Concomitant]
     Active Substance: MIRTAZAPINE
  5. NITROGLYCERIN. [Concomitant]
     Active Substance: NITROGLYCERIN
  6. URINOZINC [Concomitant]
  7. ESBRIET [Suspect]
     Active Substance: PIRFENIDONE
     Indication: IDIOPATHIC PULMONARY FIBROSIS
     Route: 048
     Dates: start: 20170722
  8. TOBRAMYCIN. [Concomitant]
     Active Substance: TOBRAMYCIN
  9. SODIUM CHLOR [Concomitant]
     Active Substance: SODIUM CHLORIDE
  10. DOXYCYCLINE. [Concomitant]
     Active Substance: DOXYCYCLINE
  11. NEBUSAL [Concomitant]
     Active Substance: SODIUM CHLORIDE
  12. IPRATROPIUM [Concomitant]
     Active Substance: IPRATROPIUM
  13. FUROSEMIDE. [Concomitant]
     Active Substance: FUROSEMIDE
  14. SOTALOL. [Concomitant]
     Active Substance: SOTALOL
  15. FINASTERIDE. [Concomitant]
     Active Substance: FINASTERIDE
  16. ATORVASTATIN [Concomitant]
     Active Substance: ATORVASTATIN
  17. DRONABINOL. [Concomitant]
     Active Substance: DRONABINOL

REACTIONS (2)
  - Pyrexia [None]
  - Staphylococcal infection [None]

NARRATIVE: CASE EVENT DATE: 2019
